FAERS Safety Report 15782736 (Version 3)
Quarter: 2019Q1

REPORT INFORMATION
  Report Type: Spontaneous
  Country: US (occurrence: US)
  Receive Date: 20190102
  Receipt Date: 20190315
  Transmission Date: 20190417
  Serious: No
  Sender: FDA-Public Use
  Company Number: US-PFIZER INC-2018532057

PATIENT
  Age: 82 Year
  Sex: Female
  Weight: 96.16 kg

DRUGS (7)
  1. IBRANCE [Suspect]
     Active Substance: PALBOCICLIB
     Indication: BREAST CANCER METASTATIC
     Dosage: 100 MG, 1X/DAY
     Route: 048
     Dates: start: 20170415
  2. LOSARTAN. [Concomitant]
     Active Substance: LOSARTAN
     Dosage: 25 MG, UNK
     Dates: start: 20151230
  3. WARFARIN [Concomitant]
     Active Substance: WARFARIN
     Dosage: 2 MG, 1X/DAY (EVERY NIGHT)
     Route: 048
  4. DILTIAZEM. [Concomitant]
     Active Substance: DILTIAZEM
     Indication: CARDIAC DISORDER
     Dosage: 180 MG, 1X/DAY (ONCE IN THE MORNING)
     Route: 048
  5. DILTIAZEM. [Concomitant]
     Active Substance: DILTIAZEM
     Dosage: 2 DF, UNK
     Dates: start: 20110805
  6. WARFARIN [Concomitant]
     Active Substance: WARFARIN
     Dosage: 2 MG
     Dates: start: 20110805
  7. WARFARIN [Concomitant]
     Active Substance: WARFARIN
     Dosage: 2 SOMETIMES ITS 3 SOMETIMES ITS 4 DEPENDING ON WHEN I HAVE TO GO FOR MY CHECKUP

REACTIONS (1)
  - Neoplasm recurrence [Unknown]
